FAERS Safety Report 6096956-4 (Version None)
Quarter: 2009Q1

REPORT INFORMATION
  Report Type: 
  Country: None (occurrence: None)
  Receive Date: 20090225
  Receipt Date: 20090225
  Transmission Date: 20090719
  Serious: Yes (Disabling)
  Sender: FDA-Public Use
  Company Number: None

PATIENT
  Sex: Male
  Weight: 111.1313 kg

DRUGS (1)
  1. TRIMETHOPRIM [Suspect]
     Indication: PROSTATITIS
     Dosage: 100 MG 2 X DAILY ORAL
     Route: 048
     Dates: start: 20090103, end: 20090206

REACTIONS (6)
  - MUSCLE SWELLING [None]
  - MUSCLE TIGHTNESS [None]
  - MUSCULOSKELETAL DISCOMFORT [None]
  - MYALGIA [None]
  - NAUSEA [None]
  - PRURITUS [None]
